FAERS Safety Report 25707828 (Version 1)
Quarter: 2025Q3

REPORT INFORMATION
  Report Type: Spontaneous
  Country: US (occurrence: US)
  Receive Date: 20250820
  Receipt Date: 20250820
  Transmission Date: 20251020
  Serious: No
  Sender: ELI LILLY AND COMPANY
  Company Number: US-ELI_LILLY_AND_COMPANY-US202508018590

PATIENT
  Age: 49 Year

DRUGS (2)
  1. TRULICITY [Suspect]
     Active Substance: DULAGLUTIDE
     Indication: Type 2 diabetes mellitus
     Route: 058
     Dates: start: 202506
  2. TRULICITY [Suspect]
     Active Substance: DULAGLUTIDE
     Indication: Type 2 diabetes mellitus
     Route: 058

REACTIONS (4)
  - Incorrect dose administered [Unknown]
  - Injection site injury [Unknown]
  - Injection site haemorrhage [Unknown]
  - Injection site bruising [Unknown]

NARRATIVE: CASE EVENT DATE: 20250819
